FAERS Safety Report 8802736 (Version 2)
Quarter: 2015Q3

REPORT INFORMATION
  Report Type: Report from Study
  Country: US (occurrence: US)
  Receive Date: 20120921
  Receipt Date: 20150713
  Transmission Date: 20151125
  Serious: Yes (Death, Hospitalization)
  Sender: FDA-Public Use
  Company Number: US-ROCHE-1097610

PATIENT
  Sex: Female

DRUGS (29)
  1. FLUZONE (UNITED STATES) [Concomitant]
     Route: 042
  2. ZOFRAN [Concomitant]
     Active Substance: ONDANSETRON HYDROCHLORIDE
     Route: 048
  3. ATIVAN [Concomitant]
     Active Substance: LORAZEPAM
     Route: 065
  4. FLEXERIL [Concomitant]
     Active Substance: CYCLOBENZAPRINE HYDROCHLORIDE
     Route: 048
  5. GRANISETRON [Concomitant]
     Active Substance: GRANISETRON
     Route: 042
  6. ARANESP [Concomitant]
     Active Substance: DARBEPOETIN ALFA
     Route: 058
  7. AREDIA [Concomitant]
     Active Substance: PAMIDRONATE DISODIUM
     Route: 042
  8. PNEUMOVAX 23 [Concomitant]
     Active Substance: PNEUMOCOCCAL VACCINE, POLYVALENT 23
     Route: 042
     Dates: start: 20071113
  9. BENADRYL [Concomitant]
     Active Substance: DIPHENHYDRAMINE HYDROCHLORIDE
     Route: 065
  10. SYNTHROID [Concomitant]
     Active Substance: LEVOTHYROXINE SODIUM
     Route: 065
  11. ABRAXANE [Concomitant]
     Active Substance: PACLITAXEL
     Route: 042
     Dates: start: 20070920
  12. BONIVA [Concomitant]
     Active Substance: IBANDRONATE SODIUM
     Route: 042
  13. VANCOMYCIN [Concomitant]
     Active Substance: VANCOMYCIN
     Route: 042
  14. PRILOSEC [Concomitant]
     Active Substance: OMEPRAZOLE MAGNESIUM
  15. ZONATUSS [Concomitant]
     Active Substance: BENZONATATE
  16. FAMVIR (UNITED STATES) [Concomitant]
  17. ARANESP [Concomitant]
     Active Substance: DARBEPOETIN ALFA
     Route: 058
  18. ROCEPHIN [Concomitant]
     Active Substance: CEFTRIAXONE SODIUM
     Route: 042
  19. LORTAB (UNITED STATES) [Concomitant]
  20. AVASTIN [Suspect]
     Active Substance: BEVACIZUMAB
     Indication: BREAST CANCER
     Route: 042
     Dates: start: 20070920
  21. SYNTHROID [Concomitant]
     Active Substance: LEVOTHYROXINE SODIUM
     Route: 065
  22. ABRAXANE [Concomitant]
     Active Substance: PACLITAXEL
     Route: 042
     Dates: start: 20070920
  23. AVASTIN [Suspect]
     Active Substance: BEVACIZUMAB
     Indication: BONE CANCER
     Route: 042
     Dates: start: 20071004
  24. FLUZONE (UNITED STATES) [Concomitant]
     Route: 042
  25. DECADRON [Concomitant]
     Active Substance: DEXAMETHASONE
     Route: 042
  26. LEVAQUIN [Concomitant]
     Active Substance: LEVOFLOXACIN
  27. ZYRTEC [Concomitant]
     Active Substance: CETIRIZINE HYDROCHLORIDE
     Route: 065
  28. PEPCID [Concomitant]
     Active Substance: FAMOTIDINE
  29. MOBIC [Concomitant]
     Active Substance: MELOXICAM

REACTIONS (36)
  - Death [Fatal]
  - Fatigue [Unknown]
  - Balance disorder [Unknown]
  - Myalgia [Unknown]
  - Diarrhoea [Unknown]
  - Wheezing [Unknown]
  - Pyrexia [Unknown]
  - Intestinal obstruction [Unknown]
  - Neck pain [Unknown]
  - Insomnia [Unknown]
  - Pulmonary mass [Unknown]
  - Dyspnoea [Unknown]
  - Gastric dilatation [Unknown]
  - Oral herpes [Unknown]
  - Off label use [Unknown]
  - Decreased appetite [Unknown]
  - Pallor [Unknown]
  - Malaise [Unknown]
  - Epistaxis [Unknown]
  - Lung infiltration [Unknown]
  - Anxiety [Unknown]
  - Dyspepsia [Unknown]
  - Abdominal distension [Unknown]
  - Nasal discomfort [Unknown]
  - Pleural effusion [Unknown]
  - Atelectasis [Unknown]
  - Upper-airway cough syndrome [Unknown]
  - Abdominal pain upper [Unknown]
  - Visual impairment [Unknown]
  - Neutropenia [Unknown]
  - Ascites [Unknown]
  - Constipation [Unknown]
  - Stomatitis [Unknown]
  - Protein urine [Unknown]
  - Alopecia [Unknown]
  - Aspiration [Unknown]
